FAERS Safety Report 8828924 (Version 1)
Quarter: 2012Q4

REPORT INFORMATION
  Report Type: Spontaneous
  Country: GB (occurrence: None)
  Receive Date: 20121004
  Receipt Date: 20121004
  Transmission Date: 20130627
  Serious: Yes (Hospitalization)
  Sender: FDA-Public Use
  Company Number: GB-DEXPHARM-20121266

PATIENT
  Age: 50 Year

DRUGS (13)
  1. OMEPRAZOLE [Suspect]
     Dosage: dosage text: in the morning
sep. dosages / interval: 1 in 1 Day
cumulative dose: 560.0 Mg milligram(s)
     Route: 048
     Dates: start: 20120801
  2. ASPIRIN [Concomitant]
  3. BISOPROLOL [Concomitant]
  4. BUMETANIDE [Concomitant]
  5. DIGOXIN [Concomitant]
  6. LACTULOSE [Concomitant]
  7. METFORMIN [Concomitant]
  8. MIRTAZAPINE [Concomitant]
  9. PARACETAMOL [Concomitant]
  10. RAMIPRIL [Concomitant]
  11. SIMVASTATIN [Concomitant]
  12. SPIRINOLACTONE [Concomitant]
  13. THIAMINE [Concomitant]

REACTIONS (2)
  - Chapped lips [None]
  - Lip pain [None]
